FAERS Safety Report 4709996-1 (Version None)
Quarter: 2005Q3

REPORT INFORMATION
  Report Type: 
  Country: None (occurrence: None)
  Receive Date: 20050708
  Receipt Date: 20050630
  Transmission Date: 20060218
  Serious: Yes (Hospitalization, Other)
  Sender: FDA-Public Use
  Company Number: 200511361DE

PATIENT
  Age: 23 Year
  Sex: Female

DRUGS (1)
  1. LANTUS [Suspect]
     Route: 042
     Dates: start: 20050627, end: 20050627

REACTIONS (3)
  - CONVULSION [None]
  - HYPOGLYCAEMIA [None]
  - SUICIDE ATTEMPT [None]
